FAERS Safety Report 4527161-8 (Version None)
Quarter: 2004Q4

REPORT INFORMATION
  Report Type: 
  Country: None (occurrence: None)
  Receive Date: 20041126
  Receipt Date: 20040510
  Transmission Date: 20050328
  Serious: Yes (Hospitalization, Other)
  Sender: FDA-Public Use
  Company Number: 2003177046US

PATIENT
  Age: 73 Year
  Sex: Female

DRUGS (1)
  1. ZYVOX [Suspect]
     Indication: INFECTION
     Dosage: ORAL
     Route: 048

REACTIONS (4)
  - ASTHENIA [None]
  - DIARRHOEA [None]
  - PALLOR [None]
  - THROMBOCYTOPENIA [None]
